FAERS Safety Report 14616579 (Version 4)
Quarter: 2018Q2

REPORT INFORMATION
  Report Type: Report from Study
  Country: None (occurrence: US)
  Receive Date: 20180309
  Receipt Date: 20180614
  Transmission Date: 20180711
  Serious: Yes (Hospitalization, Other)
  Sender: FDA-Public Use
  Company Number: US-ABBVIE-18K-163-2280577-00

PATIENT
  Age: 72 Year
  Sex: Female
  Weight: 59.02 kg

DRUGS (19)
  1. SINGULAIR [Concomitant]
     Active Substance: MONTELUKAST SODIUM
     Indication: HYPERSENSITIVITY
  2. ADVAIR DISKUS [Concomitant]
     Active Substance: FLUTICASONE PROPIONATE\SALMETEROL XINAFOATE
     Indication: ASTHMA
  3. PENTASA [Concomitant]
     Active Substance: MESALAMINE
     Indication: CROHN^S DISEASE
  4. VITAMIN D [Concomitant]
     Active Substance: CHOLECALCIFEROL
     Indication: BONE DISORDER
  5. VITAMIN B12 [Concomitant]
     Active Substance: CYANOCOBALAMIN
     Indication: VITAMIN SUPPLEMENTATION
  6. TRAZODONE [Concomitant]
     Active Substance: TRAZODONE HYDROCHLORIDE
     Indication: SLEEP DISORDER THERAPY
  7. PROAIR HFA [Concomitant]
     Active Substance: ALBUTEROL SULFATE
     Indication: ASTHMA
  8. HUMIRA [Suspect]
     Active Substance: ADALIMUMAB
     Indication: CROHN^S DISEASE
     Route: 058
  9. CALCIUM [Concomitant]
     Active Substance: CALCIUM
     Indication: BONE DISORDER
  10. VITAMIN B3 [Concomitant]
     Active Substance: NIACIN
     Indication: VITAMIN SUPPLEMENTATION
  11. CITALOPRAM [Concomitant]
     Active Substance: CITALOPRAM HYDROBROMIDE
     Indication: DEPRESSION
  12. ALBUTEROL. [Concomitant]
     Active Substance: ALBUTEROL
     Indication: ASTHMA
  13. HUMIRA [Suspect]
     Active Substance: ADALIMUMAB
     Route: 058
  14. MAGNESIUM [Concomitant]
     Active Substance: MAGNESIUM
     Indication: MUSCLE SPASMS
  15. CETIRIZINE [Concomitant]
     Active Substance: CETIRIZINE HYDROCHLORIDE
     Indication: HYPERSENSITIVITY
  16. OMEPRAZOLE. [Concomitant]
     Active Substance: OMEPRAZOLE
     Indication: GASTROOESOPHAGEAL REFLUX DISEASE
  17. COLACE [Concomitant]
     Active Substance: DOCUSATE SODIUM
     Indication: PROPHYLAXIS
  18. TOLTERODINE [Concomitant]
     Active Substance: TOLTERODINE
     Indication: PROPHYLAXIS
  19. ACTONEL [Concomitant]
     Active Substance: RISEDRONATE SODIUM
     Indication: HYPERSENSITIVITY

REACTIONS (6)
  - Large intestinal obstruction [Recovering/Resolving]
  - Drug ineffective [Unknown]
  - Gastrointestinal disorder [Not Recovered/Not Resolved]
  - Asthma [Unknown]
  - Malignant neoplasm of thymus [Unknown]
  - Uterine leiomyoma [Unknown]

NARRATIVE: CASE EVENT DATE: 20180226
